FAERS Safety Report 18690764 (Version 1)
Quarter: 2021Q1

REPORT INFORMATION
  Report Type: Spontaneous
  Country: US (occurrence: US)
  Receive Date: 20210101
  Receipt Date: 20210101
  Transmission Date: 20210419
  Serious: Yes (Other)
  Sender: FDA-Public Use
  Company Number: US-ASTELLAS-2020US046098

PATIENT
  Age: 32 Year
  Sex: Male

DRUGS (3)
  1. TACROLIMUS. [Suspect]
     Active Substance: TACROLIMUS
     Indication: RENAL AND PANCREAS TRANSPLANT
     Dosage: UNK UNK, UNKNOWN FREQ.
     Route: 065
     Dates: start: 2016
  2. PREDNISONE. [Concomitant]
     Active Substance: PREDNISONE
     Indication: RENAL AND PANCREAS TRANSPLANT
     Dosage: UNK UNK, UNKNOWN FREQ.
     Route: 065
     Dates: start: 2016
  3. MYCOPHENOLATE MOFETIL. [Concomitant]
     Active Substance: MYCOPHENOLATE MOFETIL
     Indication: RENAL AND PANCREAS TRANSPLANT
     Dosage: UNK UNK, UNKNOWN FREQ.
     Route: 065
     Dates: start: 2016

REACTIONS (5)
  - Urinary tract infection viral [Recovered/Resolved]
  - Adenoviral upper respiratory infection [Recovered/Resolved]
  - Adenovirus test positive [Recovered/Resolved]
  - Nephropathy [Recovered/Resolved]
  - Adenovirus infection [Recovered/Resolved]

NARRATIVE: CASE EVENT DATE: 2017
